FAERS Safety Report 4437349-2 (Version None)
Quarter: 2004Q3

REPORT INFORMATION
  Report Type: 
  Country: None (occurrence: None)
  Receive Date: 20040726
  Receipt Date: 20040326
  Transmission Date: 20050211
  Serious: No
  Sender: FDA-Public Use
  Company Number: USA040363282

PATIENT
  Age: 77 Year
  Sex: Female

DRUGS (10)
  1. FORTEO [Suspect]
     Indication: OSTEOPOROSIS
     Dates: start: 20030101, end: 20040213
  2. ACTONEL [Concomitant]
  3. NEXIUM [Concomitant]
  4. DETROL [Concomitant]
  5. NORVASC [Concomitant]
  6. VIOXX [Concomitant]
  7. AVAPRO [Concomitant]
  8. OSCAL (CALCIUM CARBONATE) [Concomitant]
  9. EXELON [Concomitant]
  10. PREDNISONE [Concomitant]

REACTIONS (3)
  - FALL [None]
  - HYPOAESTHESIA [None]
  - HYPOAESTHESIA ORAL [None]
